FAERS Safety Report 4350558-6 (Version None)
Quarter: 2004Q2

REPORT INFORMATION
  Report Type: 
  Country: None (occurrence: None)
  Receive Date: 20040430
  Receipt Date: 20040429
  Transmission Date: 20050107
  Serious: Yes (Hospitalization)
  Sender: FDA-Public Use
  Company Number: US-BRISTOL-MYERS SQUIBB COMPANY-12574497

PATIENT
  Age: 58 Year
  Sex: Female

DRUGS (4)
  1. CETUXIMAB [Suspect]
     Indication: NON-SMALL CELL LUNG CANCER
     Route: 042
     Dates: start: 20040311, end: 20040311
  2. AMBIEN [Concomitant]
     Dates: start: 20040408
  3. LEVAQUIN [Concomitant]
     Dates: start: 20040421
  4. VICODIN [Concomitant]
     Dates: start: 20030828

REACTIONS (3)
  - ANAEMIA [None]
  - ASTHENIA [None]
  - EPISTAXIS [None]
